FAERS Safety Report 8247518-1 (Version None)
Quarter: 2012Q1

REPORT INFORMATION
  Report Type: 
  Country: None (occurrence: None)
  Receive Date: 20120330
  Receipt Date: 20120327
  Transmission Date: 20120608
  Serious: Yes (Other)
  Sender: FDA-Public Use
  Company Number: KR-PFIZER INC-2012061388

PATIENT
  Age: 59 Year
  Sex: Male

DRUGS (3)
  1. CARDURA [Suspect]
     Dosage: 4 MG, 1X/DAY
     Route: 048
  2. URSO 250 [Concomitant]
     Dosage: UNK
     Route: 048
  3. CARDURA [Suspect]
     Indication: BENIGN PROSTATIC HYPERPLASIA
     Dosage: UNK
     Route: 048

REACTIONS (4)
  - ANXIETY [None]
  - CHEST PAIN [None]
  - BACK PAIN [None]
  - PROSTATE CANCER [None]
